FAERS Safety Report 14485587 (Version 2)
Quarter: 2018Q1

REPORT INFORMATION
  Report Type: Spontaneous
  Country: US (occurrence: US)
  Receive Date: 20180205
  Receipt Date: 20180214
  Transmission Date: 20180509
  Serious: Yes (Hospitalization)
  Sender: FDA-Public Use
  Company Number: US-UNITED THERAPEUTICS-UNT-2018-001383

PATIENT
  Age: 55 Year
  Sex: Male
  Weight: 99.77 kg

DRUGS (4)
  1. REMODULIN [Suspect]
     Active Substance: TREPROSTINIL
     Dosage: 0.0375 ?G/KG, CONTINUING
     Route: 041
     Dates: start: 20090116
  2. ADEMPAS [Concomitant]
     Active Substance: RIOCIGUAT
     Indication: PRODUCT USED FOR UNKNOWN INDICATION
     Route: 065
  3. REMODULIN [Suspect]
     Active Substance: TREPROSTINIL
     Indication: PULMONARY ARTERIAL HYPERTENSION
     Dosage: 0.0405 ?G/KG, CONTINUING
     Route: 041
     Dates: start: 20090116
  4. REMODULIN [Suspect]
     Active Substance: TREPROSTINIL
     Dosage: 0.038 ?G/KG, CONTINUING
     Route: 041

REACTIONS (3)
  - Hallucination, auditory [Unknown]
  - Cardiac disorder [Unknown]
  - Liver disorder [Unknown]

NARRATIVE: CASE EVENT DATE: 20180129
